FAERS Safety Report 9668406 (Version 2)
Quarter: 2013Q4

REPORT INFORMATION
  Report Type: Spontaneous
  Country: AU (occurrence: AU)
  Receive Date: 20131104
  Receipt Date: 20131104
  Transmission Date: 20140711
  Serious: Yes (Other)
  Sender: FDA-Public Use
  Company Number: AU-AMGEN-AUSSP2013066423

PATIENT
  Age: 88 Year
  Sex: Male

DRUGS (9)
  1. PROLIA [Suspect]
     Indication: PRODUCT USED FOR UNKNOWN INDICATION
     Dosage: UNK
     Route: 065
     Dates: start: 20121019
  2. FOSAMAX [Concomitant]
  3. ACTONEL [Concomitant]
  4. PREDNISONE [Concomitant]
     Indication: OSTEOPOROSIS
     Route: 048
  5. BACTRIN [Concomitant]
     Indication: RASH PRURITIC
  6. CEPHALEXIN                         /00145501/ [Concomitant]
     Indication: RASH PRURITIC
  7. CEFOXIM                            /00454602/ [Concomitant]
     Indication: RASH PRURITIC
  8. NORFLOXACIN [Concomitant]
     Indication: RASH PRURITIC
  9. DOXYCYCLINE [Concomitant]
     Indication: RASH PRURITIC

REACTIONS (12)
  - Infected skin ulcer [Unknown]
  - Pseudomonas infection [Not Recovered/Not Resolved]
  - Rash pruritic [Not Recovered/Not Resolved]
  - Pain [Unknown]
  - Staphylococcal skin infection [Unknown]
  - Chronic obstructive pulmonary disease [Unknown]
  - Gastrointestinal infection [Unknown]
  - Cardiomegaly [Unknown]
  - Bone density decreased [Unknown]
  - Lumbar spinal stenosis [Unknown]
  - Blood cholesterol increased [Unknown]
  - Spinal osteoarthritis [Unknown]
